FAERS Safety Report 6528356-4 (Version None)
Quarter: 2010Q1

REPORT INFORMATION
  Report Type: 
  Country: None (occurrence: None)
  Receive Date: 20100106
  Receipt Date: 20091231
  Transmission Date: 20100710
  Serious: Yes (Hospitalization, Other)
  Sender: FDA-Public Use
  Company Number: PHEH2009US15688

PATIENT
  Sex: Female

DRUGS (15)
  1. EXJADE [Suspect]
     Indication: IRON METABOLISM DISORDER
     Dosage: 1250 MG, DAILY
     Route: 048
     Dates: start: 20090811, end: 20091105
  2. EXJADE [Suspect]
     Dosage: 1250 MG, DAILY
     Route: 048
  3. SOLU-MEDROL [Concomitant]
     Dosage: UNK
  4. CALCIUM [Concomitant]
     Dosage: UNK
  5. BACLOFEN [Concomitant]
     Dosage: UNK
  6. ZINC [Concomitant]
     Dosage: UNK
  7. PREVACID [Concomitant]
     Dosage: UNK
  8. ACYCLOVIR [Concomitant]
     Dosage: UNK
  9. ENABLEX [Concomitant]
     Dosage: UNK
  10. PROZAC [Concomitant]
     Dosage: UNK
  11. MAGNESIUM [Concomitant]
     Dosage: UNK
  12. COLACE [Concomitant]
     Dosage: UNK
  13. DOXYCYCLINE [Concomitant]
     Dosage: UNK
  14. GLUCOSAMINE [Concomitant]
     Dosage: UNK
  15. PREDNISONE [Concomitant]

REACTIONS (2)
  - ABDOMINAL PAIN UPPER [None]
  - HERNIA REPAIR [None]
